FAERS Safety Report 8024225-1 (Version None)
Quarter: 2012Q1

REPORT INFORMATION
  Report Type: 
  Country: None (occurrence: None)
  Receive Date: 20120105
  Receipt Date: 20120103
  Transmission Date: 20120608
  Serious: Yes (Other)
  Sender: FDA-Public Use
  Company Number: PHHY2011US53670

PATIENT
  Sex: Female

DRUGS (8)
  1. FLEXERIL [Concomitant]
     Indication: MUSCLE SPASMS
     Dosage: UNK UKN, TID
     Route: 048
  2. COZAAR [Concomitant]
     Indication: HYPERTENSION
     Dosage: 1 DF, DAILY
     Route: 048
  3. NEXIUM [Concomitant]
     Indication: GASTROOESOPHAGEAL REFLUX DISEASE
     Dosage: 1 DF, DAILY
     Route: 048
  4. GILENYA [Suspect]
     Dosage: 0.5 MG, DAILY
     Route: 048
     Dates: start: 20110619
  5. VYTORIN [Concomitant]
     Dosage: 1 DF, DAILY
     Route: 048
  6. DIOVAN [Concomitant]
     Dosage: 1 DF,DAILY
     Route: 048
  7. GILENYA [Suspect]
     Indication: MULTIPLE SCLEROSIS
     Dosage: 0.5 MG, QD
     Route: 048
     Dates: start: 20110118, end: 20110501
  8. LEXAPRO [Concomitant]
     Indication: DEPRESSION
     Dosage: 1 DF, DAILY
     Route: 048

REACTIONS (4)
  - CARDIAC DISORDER [None]
  - BACK PAIN [None]
  - TACHYCARDIA [None]
  - PALPITATIONS [None]
